FAERS Safety Report 7907665-8 (Version None)
Quarter: 2011Q4

REPORT INFORMATION
  Report Type: 
  Country: None (occurrence: None)
  Receive Date: 20111109
  Receipt Date: 20111026
  Transmission Date: 20120403
  Serious: Yes (Disabling)
  Sender: FDA-Public Use
  Company Number: TUK2011A00183

PATIENT
  Age: 70 Year
  Sex: Male

DRUGS (12)
  1. METFORMIN HCL [Concomitant]
  2. FELBINAC (FELBINAC) [Concomitant]
  3. OMEPRAZOLE [Concomitant]
  4. DILTIAZEM HYDROCHLORIDE [Concomitant]
  5. DOXAZOSIN MESYLATE [Concomitant]
  6. HUMALOG MIX 75/25 [Concomitant]
  7. ACTOS [Suspect]
     Indication: DIABETES MELLITUS
     Dosage: 15 MG
     Route: 048
     Dates: start: 20100208, end: 20110831
  8. RAMIPRIL [Concomitant]
  9. LIRAGLUTIDE(LIRAGLUTIDE) [Concomitant]
  10. TELMISARTAN [Concomitant]
  11. GLIMEPIRIDE [Concomitant]
  12. SIMVASTATIN [Concomitant]

REACTIONS (4)
  - DECREASED APPETITE [None]
  - NAUSEA [None]
  - ASTHENIA [None]
  - HEPATITIS [None]
